FAERS Safety Report 23118118 (Version 1)
Quarter: 2023Q4

REPORT INFORMATION
  Report Type: Report from Study
  Country: US (occurrence: US)
  Receive Date: 20231027
  Receipt Date: 20231027
  Transmission Date: 20240109
  Serious: Yes (Hospitalization, Other)
  Sender: FDA-Public Use
  Company Number: US-GILEAD-2023-0648755

PATIENT
  Age: 51 Year
  Sex: Male

DRUGS (2)
  1. AZTREONAM LYSINE [Suspect]
     Active Substance: AZTREONAM LYSINE
     Indication: Cystic fibrosis
     Dosage: INHALE 1ML (75MG TOTAL) VIA NEBULIZER INTO LUNGS THREE TIMES DAILY 28 DAYS ON AND THEN 28 DAYS OFF
     Route: 055
     Dates: start: 20230814
  2. DEXACOM [Concomitant]

REACTIONS (1)
  - Pulmonary thrombosis [Recovered/Resolved]

NARRATIVE: CASE EVENT DATE: 20231009
